FAERS Safety Report 25030946 (Version 2)
Quarter: 2025Q2

REPORT INFORMATION
  Report Type: Spontaneous
  Country: ZA (occurrence: ZA)
  Receive Date: 20250303
  Receipt Date: 20250401
  Transmission Date: 20250717
  Serious: Yes (Other)
  Sender: BAYER
  Company Number: ZA-BAYER-2025A026665

PATIENT
  Age: 60 Year
  Sex: Female

DRUGS (29)
  1. ANGELIQ [Suspect]
     Active Substance: DROSPIRENONE\ESTRADIOL
     Indication: Hormone replacement therapy
     Dosage: 1 DF, QD
     Route: 048
  2. AMITRIPTYLINE [Concomitant]
     Active Substance: AMITRIPTYLINE
     Indication: Depression
     Dosage: 25 MG, QD
     Route: 048
  3. Sinutab [Concomitant]
     Route: 045
  4. Allergex [Concomitant]
     Indication: Hypersensitivity
     Route: 048
  5. URISPAS [Concomitant]
     Active Substance: FLAVOXATE HYDROCHLORIDE
     Indication: Hypertonic bladder
     Dosage: 200 MG, TID
     Route: 048
  6. FOSFOMYCIN TROMETHAMINE [Concomitant]
     Active Substance: FOSFOMYCIN TROMETHAMINE
     Route: 048
  7. Unguentum acidi borici [Concomitant]
     Dosage: UNK UNK, QD
     Route: 061
  8. Repivate [Concomitant]
     Indication: Dermatitis allergic
     Dosage: 0.1 %, QD
     Route: 061
  9. PREDNISONE [Concomitant]
     Active Substance: PREDNISONE
     Dosage: 20 MG, QD
     Route: 048
  10. LEVOTHYROXINE [Concomitant]
     Active Substance: LEVOTHYROXINE
     Indication: Hypothyroidism
     Dosage: 100 MG, QD
     Route: 048
  11. PYRIDIUM [Concomitant]
     Active Substance: PHENAZOPYRIDINE
     Dosage: 100 MG, TID
     Route: 048
  12. Syndol [Concomitant]
     Route: 048
  13. Syndol [Concomitant]
     Route: 048
  14. NORFLEX [Concomitant]
     Active Substance: ORPHENADRINE CITRATE
     Route: 048
  15. Medazine [Concomitant]
     Indication: Nausea
     Route: 048
  16. MEBEVERINE [Concomitant]
     Active Substance: MEBEVERINE
     Indication: Irritable bowel syndrome
     Route: 048
  17. CETIRIZINE HYDROCHLORIDE [Concomitant]
     Active Substance: CETIRIZINE HYDROCHLORIDE
     Indication: Hypersensitivity
     Route: 048
  18. ACETAMINOPHEN\ORPHENADRINE CITRATE [Concomitant]
     Active Substance: ACETAMINOPHEN\ORPHENADRINE CITRATE
     Dosage: 2 DF, TID
     Route: 048
  19. LIBRAX [Concomitant]
     Active Substance: CHLORDIAZEPOXIDE HYDROCHLORIDE\CLIDINIUM BROMIDE
     Indication: Abdominal pain upper
     Dosage: 1 DF, QD
     Route: 048
  20. Synaleve [Concomitant]
     Indication: Pain
     Dosage: 2 DF, TID
     Route: 048
  21. PREGABALIN [Concomitant]
     Active Substance: PREGABALIN
     Indication: Epilepsy
     Dosage: 25 MG, BID
     Route: 048
  22. ZOLPIDEM TARTRATE [Concomitant]
     Active Substance: ZOLPIDEM TARTRATE
     Indication: Insomnia
     Dosage: 10 MG, QD
     Route: 048
  23. ACETAMINOPHEN\TRAMADOL HYDROCHLORIDE [Concomitant]
     Active Substance: ACETAMINOPHEN\TRAMADOL HYDROCHLORIDE
     Indication: Pain
     Dosage: 1 DF, TID
     Route: 048
  24. CYCLOBENZAPRINE HYDROCHLORIDE [Concomitant]
     Active Substance: CYCLOBENZAPRINE HYDROCHLORIDE
     Dosage: 30 MG, QD
     Route: 048
  25. Pectrolyte [Concomitant]
     Route: 048
  26. Adco mayogel [Concomitant]
     Route: 048
  27. Adco napacod [Concomitant]
     Dosage: 2 DF, TID
     Route: 048
  28. Ciplactin [Concomitant]
     Dosage: 4 MG, QD
     Route: 048
  29. Austifen [Concomitant]
     Dosage: 800 MG, TID
     Route: 048

REACTIONS (6)
  - Gastric ulcer [None]
  - Illness [Recovering/Resolving]
  - Insomnia [None]
  - Arthralgia [None]
  - Scoliosis [None]
  - Eating disorder [None]
